FAERS Safety Report 24279627 (Version 1)
Quarter: 2024Q3

REPORT INFORMATION
  Report Type: Spontaneous
  Country: US (occurrence: US)
  Receive Date: 20240904
  Receipt Date: 20240904
  Transmission Date: 20241017
  Serious: No
  Sender: ROCHE
  Company Number: US-ROCHE-10000070368

PATIENT

DRUGS (1)
  1. VABYSMO [Suspect]
     Active Substance: FARICIMAB\FARICIMAB-SVOA
     Indication: Diabetic retinopathy
     Dosage: 6MG (0.05ML/120MG) SOLUTION
     Route: 065

REACTIONS (3)
  - Off label use [Unknown]
  - Product contamination physical [Unknown]
  - No adverse event [Unknown]
